FAERS Safety Report 16773285 (Version 7)
Quarter: 2020Q1

REPORT INFORMATION
  Report Type: Spontaneous
  Country: BR (occurrence: BR)
  Receive Date: 20190904
  Receipt Date: 20200313
  Transmission Date: 20200409
  Serious: Yes (Hospitalization, Other)
  Sender: FDA-Public Use
  Company Number: BR-GLAXOSMITHKLINE-BR2019GSK088166

PATIENT
  Age: 81 Year
  Sex: Male
  Weight: 55 kg

DRUGS (7)
  1. PREDSIM [Suspect]
     Active Substance: PREDNISOLONE
     Indication: PRODUCT USED FOR UNKNOWN INDICATION
     Dosage: 40 MG, QD
  2. MONTELUKAST [Concomitant]
     Active Substance: MONTELUKAST SODIUM
     Indication: PRODUCT USED FOR UNKNOWN INDICATION
     Dosage: UNK
  3. SPIRIVA [Concomitant]
     Active Substance: TIOTROPIUM BROMIDE MONOHYDRATE
     Indication: PRODUCT USED FOR UNKNOWN INDICATION
     Dosage: UNK
  4. SYMBICORT [Concomitant]
     Active Substance: BUDESONIDE\FORMOTEROL FUMARATE DIHYDRATE
     Indication: PRODUCT USED FOR UNKNOWN INDICATION
     Dosage: UNK UNK, BID,6/200 MCG
  5. SPIRIVA [Concomitant]
     Active Substance: TIOTROPIUM BROMIDE MONOHYDRATE
     Dosage: UNK, 2.5 MCG, 2 JETS ONCE A DAY
  6. NUCALA [Suspect]
     Active Substance: MEPOLIZUMAB
     Indication: ASTHMA
     Dosage: 100 MG, UNK
     Dates: start: 20181107
  7. VANNAIR [Concomitant]
     Active Substance: BUDESONIDE\FORMOTEROL FUMARATE DIHYDRATE
     Indication: PRODUCT USED FOR UNKNOWN INDICATION
     Dosage: UNK

REACTIONS (15)
  - Wheezing [Unknown]
  - Bacterial infection [Unknown]
  - Asthmatic crisis [Not Recovered/Not Resolved]
  - Respiratory symptom [Not Recovered/Not Resolved]
  - Condition aggravated [Unknown]
  - Rheumatic disorder [Recovered/Resolved]
  - Pain in extremity [Recovered/Resolved]
  - Productive cough [Unknown]
  - Pneumonia [Unknown]
  - Disease recurrence [Recovered/Resolved]
  - Asthma [Recovering/Resolving]
  - Dyspnoea [Unknown]
  - Pain [Recovered/Resolved]
  - Product dose omission [Unknown]
  - Viral infection [Unknown]

NARRATIVE: CASE EVENT DATE: 202002
